FAERS Safety Report 17661510 (Version 1)
Quarter: 2020Q2

REPORT INFORMATION
  Report Type: Spontaneous
  Country: US (occurrence: US)
  Receive Date: 20200413
  Receipt Date: 20200413
  Transmission Date: 20200713
  Serious: Yes (Other)
  Sender: FDA-Public Use
  Company Number: None

PATIENT
  Sex: Female

DRUGS (2)
  1. DORZOLAMIDE-TIMOLOL [Suspect]
     Active Substance: DORZOLAMIDE\TIMOLOL
  2. TIMOLOL MALEATE. [Suspect]
     Active Substance: TIMOLOL MALEATE

REACTIONS (1)
  - Drug ineffective [None]
